FAERS Safety Report 5006774-3 (Version None)
Quarter: 2006Q2

REPORT INFORMATION
  Report Type: 
  Country: None (occurrence: None)
  Receive Date: 20060516
  Receipt Date: 20060509
  Transmission Date: 20061013
  Serious: Yes (Other)
  Sender: FDA-Public Use
  Company Number: 2006061641

PATIENT
  Age: 53 Year
  Sex: Female
  Weight: 48 kg

DRUGS (5)
  1. LYRICA [Suspect]
     Indication: NEURALGIA
     Dosage: 225 MG (75 MG, 3 IN 1 D), ORAL
     Route: 048
     Dates: start: 20051110, end: 20060320
  2. BACLOFEN [Concomitant]
  3. ENALAPRIL MALEATE [Concomitant]
  4. INTERFERON BETA-1A (INTERFERON BETA) [Concomitant]
  5. TAMSULOSIN (TAMULOSIN) [Concomitant]

REACTIONS (3)
  - CONFUSIONAL STATE [None]
  - DELIRIUM [None]
  - PSYCHOTIC DISORDER [None]
